FAERS Safety Report 13595602 (Version 1)
Quarter: 2017Q2

REPORT INFORMATION
  Report Type: Spontaneous
  Country: US (occurrence: US)
  Receive Date: 20170531
  Receipt Date: 20170531
  Transmission Date: 20170830
  Serious: No
  Sender: FDA-Public Use
  Company Number: US-JNJFOC-20170421531

PATIENT
  Age: 97 Year
  Sex: Male
  Weight: 80.74 kg

DRUGS (6)
  1. TYLENOL 8 HR ARTHRITIS PAIN [Suspect]
     Active Substance: ACETAMINOPHEN
     Route: 048
  2. AMLODIPINE [Concomitant]
     Active Substance: AMLODIPINE BESYLATE
     Indication: HYPERTENSION
     Dosage: 2 YEARS, 5MG /DAILY
     Route: 065
     Dates: start: 201506
  3. CERIVASTATIN [Concomitant]
     Active Substance: CERIVASTATIN
     Indication: HYPERTENSION
     Dosage: 300MG/DAILY, 2 YEARS
     Route: 065
     Dates: start: 201506
  4. DIGOXIN. [Concomitant]
     Active Substance: DIGOXIN
     Indication: HYPERTENSION
     Dosage: 4MG/DAILY, 2 YEARS
     Route: 065
     Dates: start: 201506
  5. CARVEDILOL. [Concomitant]
     Active Substance: CARVEDILOL
     Indication: HYPERTENSION
     Dosage: 2 YEARS
     Route: 065
     Dates: start: 201506
  6. TYLENOL 8 HR ARTHRITIS PAIN [Suspect]
     Active Substance: ACETAMINOPHEN
     Indication: MUSCULOSKELETAL PAIN
     Dosage: BEDTIME, SOMETIMES DONE IN THE MORNING
     Route: 048
     Dates: start: 201704

REACTIONS (3)
  - Inappropriate schedule of drug administration [Unknown]
  - Drug effect incomplete [Unknown]
  - Underdose [Unknown]

NARRATIVE: CASE EVENT DATE: 201704
